FAERS Safety Report 7785677-5 (Version None)
Quarter: 2011Q3

REPORT INFORMATION
  Report Type: 
  Country: None (occurrence: None)
  Receive Date: 20110929
  Receipt Date: 20110929
  Transmission Date: 20111222
  Serious: Yes (Life-Threatening, Hospitalization, Disabling, Other)
  Sender: FDA-Public Use
  Company Number: None

PATIENT
  Sex: Female
  Weight: 79.378 kg

DRUGS (1)
  1. MIRAPEX [Suspect]
     Indication: RESTLESS LEGS SYNDROME
     Dosage: 1MG
     Route: 048
     Dates: start: 20000101, end: 20000925

REACTIONS (11)
  - CONVERSION DISORDER [None]
  - PARANOIA [None]
  - AGGRESSION [None]
  - RESTLESS LEGS SYNDROME [None]
  - INSOMNIA [None]
  - MEMORY IMPAIRMENT [None]
  - MUSCLE SPASMS [None]
  - SOMNOLENCE [None]
  - ABASIA [None]
  - COMPULSIVE SHOPPING [None]
  - EATING DISORDER [None]
